FAERS Safety Report 8762646 (Version 1)
Quarter: 2012Q4

REPORT INFORMATION
  Report Type: 
  Country: US (occurrence: US)
  Receive Date: 20120830
  Receipt Date: 20120830
  Transmission Date: 20130627
  Serious: No
  Sender: FDA-Public Use
  Company Number: US-PFIZER INC-2012210829

PATIENT
  Age: 62 Year
  Sex: Female
  Weight: 77.1 kg

DRUGS (5)
  1. LYRICA [Suspect]
     Indication: FIBROMYALGIA
     Dosage: 200 mg, 2x/day (4-5 year ago)
     Route: 048
     Dates: end: 201208
  2. NAPROXEN SODIUM [Suspect]
     Indication: NEURALGIA
     Dosage: 500 mg, 2x/day
  3. CYMBALTA [Concomitant]
     Indication: DEPRESSION
     Dosage: 60 mg, daily
  4. LIPITOR [Concomitant]
     Indication: BLOOD CHOLESTEROL INCREASED
     Dosage: 20 mg, daily
     Route: 048
  5. XANAX [Concomitant]
     Indication: ANXIETY
     Dosage: 0.5 mg, as needed
     Route: 048

REACTIONS (2)
  - Drug ineffective [Unknown]
  - Pruritus generalised [Recovered/Resolved]
